FAERS Safety Report 23588148 (Version 1)
Quarter: 2024Q1

REPORT INFORMATION
  Report Type: Spontaneous
  Country: TR (occurrence: TR)
  Receive Date: 20240302
  Receipt Date: 20240302
  Transmission Date: 20240410
  Serious: Yes (Death, Other)
  Sender: FDA-Public Use
  Company Number: TR-Accord-409590

PATIENT
  Age: 45 Year
  Sex: Male

DRUGS (3)
  1. CISPLATIN [Suspect]
     Active Substance: CISPLATIN
     Indication: Ductal adenocarcinoma of pancreas
  2. GEMCITABINE [Suspect]
     Active Substance: GEMCITABINE
     Indication: Ductal adenocarcinoma of pancreas
  3. OLAPARIB [Suspect]
     Active Substance: OLAPARIB
     Indication: Ductal adenocarcinoma of pancreas

REACTIONS (1)
  - Pneumonia [Fatal]
